FAERS Safety Report 9804465 (Version 2)
Quarter: 2014Q1

REPORT INFORMATION
  Report Type: Spontaneous
  Country: US (occurrence: US)
  Receive Date: 20140108
  Receipt Date: 20140121
  Transmission Date: 20141002
  Serious: No
  Sender: FDA-Public Use
  Company Number: US-TEVA-454763USA

PATIENT
  Sex: Female

DRUGS (2)
  1. FENTORA [Suspect]
     Indication: PAIN
     Route: 002
  2. METHADONE [Concomitant]
     Indication: PAIN

REACTIONS (5)
  - Drug ineffective [Unknown]
  - Off label use [Unknown]
  - Drug dispensing error [Unknown]
  - Product solubility abnormal [Unknown]
  - Intentional drug misuse [Unknown]
